FAERS Safety Report 14704113 (Version 1)
Quarter: 2018Q2

REPORT INFORMATION
  Report Type: Report from Study
  Country: US (occurrence: US)
  Receive Date: 20180402
  Receipt Date: 20180402
  Transmission Date: 20180711
  Serious: Yes (Hospitalization)
  Sender: FDA-Public Use
  Company Number: US-UCBSA-2018014090

PATIENT
  Age: 58 Year
  Sex: Female

DRUGS (1)
  1. LACOSAMIDE. [Suspect]
     Active Substance: LACOSAMIDE
     Indication: PRODUCT USED FOR UNKNOWN INDICATION
     Dosage: UNK
     Dates: end: 201701

REACTIONS (4)
  - Atrioventricular block complete [Unknown]
  - Myocardial ischaemia [Unknown]
  - Septic shock [Unknown]
  - Status epilepticus [Unknown]

NARRATIVE: CASE EVENT DATE: 20170117
